FAERS Safety Report 9709632 (Version 1)
Quarter: 2013Q4

REPORT INFORMATION
  Report Type: Spontaneous
  Country: US (occurrence: US)
  Receive Date: 20131126
  Receipt Date: 20131126
  Transmission Date: 20140711
  Serious: No
  Sender: FDA-Public Use
  Company Number: US-009507513-1311USA010192

PATIENT
  Age: 61 Year
  Sex: Female

DRUGS (1)
  1. DULERA [Suspect]
     Indication: ASTHMA
     Dosage: 100/5MCG - 2 DF, BID
     Route: 055
     Dates: start: 20131108, end: 20131115

REACTIONS (1)
  - Chest discomfort [Recovered/Resolved]
